FAERS Safety Report 13765777 (Version 1)
Quarter: 2017Q3

REPORT INFORMATION
  Report Type: Spontaneous
  Country: FR (occurrence: FR)
  Receive Date: 20170718
  Receipt Date: 20170718
  Transmission Date: 20171127
  Serious: Yes (Other)
  Sender: FDA-Public Use
  Company Number: FR-ARIAD PHARMACEUTICALS, INC-2017FR008556

PATIENT

DRUGS (1)
  1. ICLUSIG [Suspect]
     Active Substance: PONATINIB
     Indication: CHRONIC MYELOID LEUKAEMIA
     Dosage: 15 MG, EVERY THREE DAYS
     Route: 048
     Dates: start: 201311

REACTIONS (5)
  - Arrhythmia [Unknown]
  - Renal failure [Unknown]
  - Lung disorder [Unknown]
  - Off label use [Unknown]
  - Bradycardia [Unknown]

NARRATIVE: CASE EVENT DATE: 201412
